FAERS Safety Report 5528866-2 (Version None)
Quarter: 2007Q4

REPORT INFORMATION
  Report Type: 
  Country: None (occurrence: None)
  Receive Date: 20071113
  Receipt Date: 20070411
  Transmission Date: 20080405
  Serious: No
  Sender: FDA-Public Use
  Company Number: 200710962US

PATIENT
  Age: 67 Year
  Sex: Female

DRUGS (16)
  1. APIDRA [Suspect]
     Indication: TYPE 2 DIABETES MELLITUS
     Dosage: INJ
     Route: 042
  2. OPTICLIK [Suspect]
  3. CELEBREX [Concomitant]
  4. NIFEDIPINE (PROCARDIA XL) [Concomitant]
  5. ESOMEPRAZOLE [Concomitant]
  6. XANAX [Concomitant]
  7. ZETIA [Concomitant]
  8. BACLOFEN [Concomitant]
  9. METOPROLOL TARTRATE [Concomitant]
  10. FERROUS SULFATE TAB [Concomitant]
  11. PAXIL [Concomitant]
  12. NORTRIPTYLINE HCL [Concomitant]
  13. ZOCOR [Concomitant]
  14. GUAIFENESIN [Concomitant]
  15. ASPIRIN [Concomitant]
  16. VITAMINS NOS (MVI) [Concomitant]

REACTIONS (4)
  - BLOOD GLUCOSE INCREASED [None]
  - INJECTION SITE HAEMORRHAGE [None]
  - INJECTION SITE IRRITATION [None]
  - NAUSEA [None]
